FAERS Safety Report 20453742 (Version 2)
Quarter: 2022Q1

REPORT INFORMATION
  Report Type: Spontaneous
  Country: US (occurrence: US)
  Receive Date: 20220210
  Receipt Date: 20220314
  Transmission Date: 20220423
  Serious: No
  Sender: FDA-Public Use
  Company Number: US-SA-SAC20220204001107

PATIENT
  Age: 43 Year
  Sex: Male

DRUGS (2)
  1. DUPIXENT [Suspect]
     Active Substance: DUPILUMAB
     Indication: Dermatitis atopic
     Dosage: 600 MG
     Route: 065
  2. DUPIXENT [Suspect]
     Active Substance: DUPILUMAB
     Indication: Asthma

REACTIONS (11)
  - Eye pain [Unknown]
  - Sinusitis [Unknown]
  - Head discomfort [Unknown]
  - Headache [Unknown]
  - Mastication disorder [Unknown]
  - Pain in jaw [Unknown]
  - Nausea [Unknown]
  - Neck pain [Unknown]
  - Photosensitivity reaction [Unknown]
  - Pain [Unknown]
  - Adverse drug reaction [Unknown]

NARRATIVE: CASE EVENT DATE: 20220121
